FAERS Safety Report 20986923 (Version 4)
Quarter: 2022Q4

REPORT INFORMATION
  Report Type: Spontaneous
  Country: IN (occurrence: IN)
  Receive Date: 20220621
  Receipt Date: 20221011
  Transmission Date: 20230113
  Serious: Yes (Other)
  Sender: FDA-Public Use
  Company Number: IN-PFIZER INC-2021064296

PATIENT
  Age: 66 Year
  Sex: Male
  Weight: 82.2 kg

DRUGS (10)
  1. CRIZOTINIB [Suspect]
     Active Substance: CRIZOTINIB
     Indication: Non-small cell lung cancer metastatic
     Dosage: 250 MG, 1X/DAY
     Route: 048
     Dates: start: 20200829
  2. CRIZOTINIB [Suspect]
     Active Substance: CRIZOTINIB
     Dosage: 250 MG, 2X/DAY
     Route: 048
     Dates: start: 20200829
  3. LEVEPIL [Concomitant]
     Dosage: UNK
  4. AZTOR [AZITHROMYCIN] [Concomitant]
     Dosage: UNK
  5. DECMAX [Concomitant]
     Dosage: 4 MG BDPC 5 DAYS (9AM, 3PM)}
  6. DECMAX [Concomitant]
     Dosage: 6 MG, DAILY (4MG AT 9AM AND 2MG AT 3PM X 5 DAYS)
  7. DECMAX [Concomitant]
     Dosage: 4 MG ODPC X 5 DAYS
  8. DECMAX [Concomitant]
     Dosage: 2 MG ODPC X 5 DAYS  (9AM)
  9. DECMAX [Concomitant]
     Dosage: 1 MG ODPC X 5 DAYS (9AM)
  10. PAN [Concomitant]
     Dosage: 40 MG ODAC BBF X 1 MONTH 9AM

REACTIONS (11)
  - Bradycardia [Unknown]
  - Vasogenic cerebral oedema [Unknown]
  - Eczema [Unknown]
  - Ageusia [Unknown]
  - Asthenia [Unknown]
  - Alanine aminotransferase increased [Unknown]
  - Aspartate aminotransferase increased [Unknown]
  - Decreased appetite [Unknown]
  - Nausea [Unknown]
  - Neoplasm progression [Unknown]
  - Inappropriate schedule of product administration [Unknown]

NARRATIVE: CASE EVENT DATE: 20201219
